FAERS Safety Report 14021753 (Version 1)
Quarter: 2017Q3

REPORT INFORMATION
  Report Type: Spontaneous
  Country: US (occurrence: US)
  Receive Date: 20170928
  Receipt Date: 20170928
  Transmission Date: 20171128
  Serious: Yes (Other)
  Sender: FDA-Public Use
  Company Number: US-CLOVIS ONCOLOGY-CLO-2017-000919

PATIENT
  Age: 71 Year
  Sex: Female

DRUGS (2)
  1. RUBRACA [Suspect]
     Active Substance: RUCAPARIB CAMSYLATE
     Indication: OVARIAN CANCER
     Dosage: 600 MG, BID
     Route: 048
     Dates: start: 20170630, end: 20170812
  2. SIMVASTATIN. [Concomitant]
     Active Substance: SIMVASTATIN
     Indication: PRODUCT USED FOR UNKNOWN INDICATION
     Dosage: UNKNOWN

REACTIONS (12)
  - Somnolence [Unknown]
  - Hypotension [Unknown]
  - Haemoglobin decreased [Recovered/Resolved]
  - Fatigue [Unknown]
  - White blood cell count decreased [Recovering/Resolving]
  - Constipation [Unknown]
  - Platelet count decreased [Not Recovered/Not Resolved]
  - Hepatic enzyme abnormal [Recovering/Resolving]
  - Pyrexia [Unknown]
  - Dysgeusia [Unknown]
  - Decreased appetite [Unknown]
  - Dysuria [Unknown]

NARRATIVE: CASE EVENT DATE: 20170630
